FAERS Safety Report 8343610-1 (Version None)
Quarter: 2012Q2

REPORT INFORMATION
  Report Type: 
  Country: None (occurrence: None)
  Receive Date: 20120503
  Receipt Date: 20120503
  Transmission Date: 20120825
  Serious: No
  Sender: FDA-Public Use
  Company Number: None

PATIENT
  Sex: Male
  Weight: 77.3 kg

DRUGS (3)
  1. LEUCOVORIN CALCIUM [Suspect]
  2. FLUOROURACIL [Suspect]
     Dosage: 2220 MG
  3. ELOXATIN [Suspect]
     Dosage: 92.5 MG

REACTIONS (1)
  - LYMPHOPENIA [None]
